FAERS Safety Report 6852060-6 (Version None)
Quarter: 2010Q3

REPORT INFORMATION
  Report Type: 
  Country: None (occurrence: None)
  Receive Date: 20100717
  Receipt Date: 20071106
  Transmission Date: 20110219
  Serious: No
  Sender: FDA-Public Use
  Company Number: US-PFIZER INC-2007094840

PATIENT
  Sex: Male
  Weight: 86.2 kg

DRUGS (3)
  1. CHANTIX [Suspect]
     Indication: SMOKING CESSATION THERAPY
     Dates: start: 20071102
  2. ZOCOR [Concomitant]
     Indication: BLOOD CHOLESTEROL INCREASED
  3. MONTELUKAST SODIUM [Concomitant]
     Indication: HYPERSENSITIVITY

REACTIONS (2)
  - DYSGEUSIA [None]
  - GLOSSODYNIA [None]
